FAERS Safety Report 14506771 (Version 2)
Quarter: 2018Q2

REPORT INFORMATION
  Report Type: Spontaneous
  Country: BR (occurrence: BR)
  Receive Date: 20180208
  Receipt Date: 20180423
  Transmission Date: 20180711
  Serious: Yes (Other)
  Sender: FDA-Public Use
  Company Number: PHHY2018BR012450

PATIENT
  Age: 60 Year
  Sex: Male
  Weight: 70 kg

DRUGS (4)
  1. AEROLIN [Concomitant]
     Active Substance: ALBUTEROL
     Indication: PRODUCT USED FOR UNKNOWN INDICATION
     Dosage: UNK
     Route: 065
  2. FORASEQ [Suspect]
     Active Substance: BUDESONIDE\FORMOTEROL FUMARATE
     Dosage: 2 DF, QD
     Route: 055
  3. FORASEQ [Suspect]
     Active Substance: BUDESONIDE\FORMOTEROL FUMARATE
     Indication: ASTHMA
     Dosage: UNK, BID (AT MORNING AND AT NIGHT FROM 20 YEARS)
     Route: 055
  4. FORASEQ [Suspect]
     Active Substance: BUDESONIDE\FORMOTEROL FUMARATE
     Dosage: UNK, BID
     Route: 055

REACTIONS (2)
  - Mitral valve prolapse [Unknown]
  - Dyspnoea [Recovered/Resolved]

NARRATIVE: CASE EVENT DATE: 200208
